FAERS Safety Report 8523650-X (Version None)
Quarter: 2012Q3

REPORT INFORMATION
  Report Type: 
  Country: None (occurrence: None)
  Receive Date: 20120720
  Receipt Date: 20120717
  Transmission Date: 20120928
  Serious: Yes (Life-Threatening, Other)
  Sender: FDA-Public Use
  Company Number: US-B.I. PHARMACEUTICALS,INC./RIDGEFIELD-2012-BP-13277BP

PATIENT
  Sex: Male

DRUGS (6)
  1. PRADAXA [Suspect]
     Indication: ATRIAL FIBRILLATION
     Dosage: 300 MG
     Route: 048
     Dates: start: 20120505, end: 20120510
  2. PLAVIX [Concomitant]
     Dosage: 75 MG
  3. LIPITOR [Concomitant]
     Dosage: 40 MG
  4. AMIODARONE HCL [Concomitant]
     Dosage: 200 MG
  5. ASPIRIN [Concomitant]
     Dosage: 81 MG
  6. METOPROLOL SUCCINATE [Concomitant]
     Dosage: 50 MG

REACTIONS (1)
  - MYOCARDIAL INFARCTION [None]
